FAERS Safety Report 12878191 (Version 1)
Quarter: 2016Q4

REPORT INFORMATION
  Report Type: Other
  Country: US (occurrence: US)
  Receive Date: 20161024
  Receipt Date: 20161024
  Transmission Date: 20170207
  Serious: Yes (Other)
  Sender: FDA-Public Use
  Company Number: US-VERTEX PHARMACEUTICALS-2016-005922

PATIENT
  Age: 17 Year
  Sex: Male
  Weight: 52 kg

DRUGS (1)
  1. ORKAMBI [Suspect]
     Active Substance: IVACAFTOR\LUMACAFTOR
     Indication: CYSTIC FIBROSIS
     Dosage: 400/250 MG, BID
     Route: 048
     Dates: start: 20150819, end: 20160719

REACTIONS (3)
  - Retinal detachment [Unknown]
  - Myopia [Unknown]
  - Concussion [Unknown]

NARRATIVE: CASE EVENT DATE: 20160625
